FAERS Safety Report 19088578 (Version 3)
Quarter: 2021Q2

REPORT INFORMATION
  Report Type: Spontaneous
  Country: IT (occurrence: IT)
  Receive Date: 20210402
  Receipt Date: 20210628
  Transmission Date: 20210717
  Serious: Yes (Hospitalization, Other)
  Sender: FDA-Public Use
  Company Number: IT-VALIDUS PHARMACEUTICALS LLC-IT-2021VAL001082

PATIENT

DRUGS (8)
  1. EMPAGLIFLOZIN [Concomitant]
     Active Substance: EMPAGLIFLOZIN
     Indication: PRODUCT USED FOR UNKNOWN INDICATION
     Dosage: UNK
     Route: 065
     Dates: start: 201905, end: 201908
  2. FUROSEMIDE. [Suspect]
     Active Substance: FUROSEMIDE
     Indication: CARDIAC FAILURE
     Dosage: 100 MG, QD
     Route: 065
     Dates: start: 201704, end: 201905
  3. METFORMIN [Concomitant]
     Active Substance: METFORMIN HYDROCHLORIDE
     Indication: PRODUCT USED FOR UNKNOWN INDICATION
     Dosage: UNK
     Route: 065
     Dates: start: 201704, end: 201908
  4. BISOPROLOL [Concomitant]
     Active Substance: BISOPROLOL
     Indication: PRODUCT USED FOR UNKNOWN INDICATION
     Dosage: UNK
     Dates: start: 201704
  5. FUROSEMIDE. [Suspect]
     Active Substance: FUROSEMIDE
     Dosage: 25 MG, THREE TIMES WEEK, TABLET
     Route: 065
     Dates: start: 2019, end: 2019
  6. POTASSIUM CANRENOATE [Suspect]
     Active Substance: CANRENOATE POTASSIUM
     Indication: PRODUCT USED FOR UNKNOWN INDICATION
     Dosage: 50 MG, UNK
     Route: 065
     Dates: start: 201704, end: 201908
  7. SACUBITRIL W/VALSARTAN [Concomitant]
     Active Substance: SACUBITRIL\VALSARTAN
     Indication: PRODUCT USED FOR UNKNOWN INDICATION
     Dosage: UNK
     Dates: start: 2019, end: 201908
  8. FUROSEMIDE. [Suspect]
     Active Substance: FUROSEMIDE
     Indication: DIABETES MELLITUS
     Dosage: 50 MG, QD REDUCED;
     Route: 065
     Dates: start: 201905, end: 2019

REACTIONS (6)
  - Weight decreased [Unknown]
  - Hyperkalaemia [Recovered/Resolved]
  - Hypovolaemia [Unknown]
  - Hypotension [Recovered/Resolved]
  - Acute kidney injury [Recovering/Resolving]
  - Metabolic acidosis [Unknown]

NARRATIVE: CASE EVENT DATE: 2019
